FAERS Safety Report 19878127 (Version 2)
Quarter: 2021Q4

REPORT INFORMATION
  Report Type: Spontaneous
  Country: US (occurrence: US)
  Receive Date: 20210923
  Receipt Date: 20211004
  Transmission Date: 20220304
  Serious: Yes (Hospitalization, Other)
  Sender: FDA-Public Use
  Company Number: US-TEVA-2021-US-1955468

PATIENT
  Age: 62 Year
  Sex: Male

DRUGS (2)
  1. PREDNISONE [Suspect]
     Active Substance: PREDNISONE
     Indication: Arthritis
     Dosage: 30 MILLIGRAM DAILY; THREE TIMES IN A DAY
     Route: 065
  2. MEDROL [Suspect]
     Active Substance: METHYLPREDNISOLONE
     Indication: Arthralgia
     Route: 065

REACTIONS (4)
  - Staphylococcal bacteraemia [Recovering/Resolving]
  - Arthritis bacterial [Recovering/Resolving]
  - Osteomyelitis [Recovering/Resolving]
  - Leukocytosis [Recovering/Resolving]
